FAERS Safety Report 20814622 (Version 1)
Quarter: 2022Q2

REPORT INFORMATION
  Report Type: Spontaneous
  Country: US (occurrence: None)
  Receive Date: 20220510
  Receipt Date: 20220510
  Transmission Date: 20220721
  Serious: Yes (Hospitalization, Other)
  Sender: FDA-Public Use
  Company Number: None

PATIENT
  Sex: Female
  Weight: 91.17 kg

DRUGS (1)
  1. SKYLA [Suspect]
     Active Substance: LEVONORGESTREL

REACTIONS (10)
  - Pelvic pain [None]
  - Pyrexia [None]
  - Dizziness [None]
  - Hyperhidrosis [None]
  - Pain [None]
  - Hypertension [None]
  - Adnexa uteri pain [None]
  - Eye pain [None]
  - Headache [None]
  - Neck pain [None]
